FAERS Safety Report 11969150 (Version 1)
Quarter: 2016Q1

REPORT INFORMATION
  Report Type: Report from Study
  Country: US (occurrence: US)
  Receive Date: 20160128
  Receipt Date: 20160128
  Transmission Date: 20160526
  Serious: No
  Sender: FDA-Public Use
  Company Number: PHEH2015US004777

PATIENT
  Sex: Female

DRUGS (1)
  1. TASIGNA [Suspect]
     Active Substance: NILOTINIB
     Indication: CHRONIC MYELOID LEUKAEMIA
     Dosage: 1300 MG, BID
     Route: 048
     Dates: start: 201308

REACTIONS (5)
  - Nausea [Recovered/Resolved]
  - Rash [Recovered/Resolved]
  - Blood blister [Recovered/Resolved]
  - Platelet count decreased [Recovered/Resolved]
  - Alopecia [Recovered/Resolved]

NARRATIVE: CASE EVENT DATE: 201308
